FAERS Safety Report 25174901 (Version 2)
Quarter: 2025Q2

REPORT INFORMATION
  Report Type: Spontaneous
  Country: FR (occurrence: FR)
  Receive Date: 20250408
  Receipt Date: 20250620
  Transmission Date: 20250716
  Serious: Yes (Other)
  Sender: NOVARTIS
  Company Number: FR-002147023-NVSC2025FR042908

PATIENT
  Age: 43 Year
  Sex: Female

DRUGS (2)
  1. KESIMPTA [Suspect]
     Active Substance: OFATUMUMAB
     Indication: Neuromyelitis optica spectrum disorder
     Route: 058
     Dates: start: 20230110, end: 20231222
  2. Imurel [Concomitant]
     Indication: Neuromyelitis optica spectrum disorder
     Route: 048
     Dates: start: 20240109, end: 20240825

REACTIONS (5)
  - Placenta praevia haemorrhage [Unknown]
  - Premature delivery [Unknown]
  - Maternal exposure during pregnancy [Unknown]
  - Off label use [Unknown]
  - Normal newborn [Unknown]
